FAERS Safety Report 23456689 (Version 2)
Quarter: 2024Q1

REPORT INFORMATION
  Report Type: Spontaneous
  Country: IT (occurrence: IT)
  Receive Date: 20240130
  Receipt Date: 20240226
  Transmission Date: 20240410
  Serious: Yes (Life-Threatening, Hospitalization, Other)
  Sender: FDA-Public Use
  Company Number: IT-009507513-2210ITA004617

PATIENT
  Age: 45 Year
  Sex: Female

DRUGS (32)
  1. CARBOPLATIN [Suspect]
     Active Substance: CARBOPLATIN
     Indication: Product used for unknown indication
     Dosage: 175 MG, QW
     Route: 065
     Dates: start: 20220530, end: 20220530
  2. CARBOPLATIN [Suspect]
     Active Substance: CARBOPLATIN
     Dosage: 175 MG, QW
     Route: 065
     Dates: start: 20220607, end: 20220607
  3. CARBOPLATIN [Suspect]
     Active Substance: CARBOPLATIN
     Dosage: 175 MG, QW
     Route: 065
     Dates: start: 20220615, end: 20220615
  4. CARBOPLATIN [Suspect]
     Active Substance: CARBOPLATIN
     Dosage: 175 MG, QW
     Route: 065
     Dates: start: 20220621, end: 20220621
  5. CARBOPLATIN [Suspect]
     Active Substance: CARBOPLATIN
     Dosage: 175 MG, QW
     Route: 065
     Dates: start: 20220628, end: 20220628
  6. CARBOPLATIN [Suspect]
     Active Substance: CARBOPLATIN
     Dosage: 175 MG, QW
     Route: 065
     Dates: start: 20220705, end: 20220705
  7. CARBOPLATIN [Suspect]
     Active Substance: CARBOPLATIN
     Dosage: 175 MG, QW
     Route: 065
     Dates: start: 20220720, end: 20220720
  8. CARBOPLATIN [Suspect]
     Active Substance: CARBOPLATIN
     Dosage: 175 MG, QW
     Route: 065
     Dates: start: 20220726, end: 20220726
  9. CARBOPLATIN [Suspect]
     Active Substance: CARBOPLATIN
     Dosage: 175 MG, QW
     Route: 065
     Dates: start: 20220803, end: 20220803
  10. CARBOPLATIN [Suspect]
     Active Substance: CARBOPLATIN
     Dosage: 175 MG, QW
     Route: 065
     Dates: start: 20220811, end: 20220811
  11. CARBOPLATIN [Suspect]
     Active Substance: CARBOPLATIN
     Dosage: 175 MG, QW
     Route: 065
     Dates: start: 20220817, end: 20220817
  12. CARBOPLATIN [Suspect]
     Active Substance: CARBOPLATIN
     Dosage: 175 MILLIGRAM, QW
     Route: 065
     Dates: start: 20220831, end: 20220831
  13. DOXORUBICIN [Suspect]
     Active Substance: DOXORUBICIN
     Indication: Product used for unknown indication
     Dosage: 60 MG/M2, Q3W (80%, 81 MG, Q3W)
     Route: 042
     Dates: start: 20220914, end: 20221005
  14. CYCLOPHOSPHAMIDE [Suspect]
     Active Substance: CYCLOPHOSPHAMIDE
     Indication: Product used for unknown indication
     Dosage: 600 MG/M2, Q3W (80%, 811 MG)
     Route: 042
     Dates: start: 20220914, end: 20221005
  15. PACLITAXEL [Suspect]
     Active Substance: PACLITAXEL
     Indication: Product used for unknown indication
     Dosage: 135 MG, QW
     Route: 065
     Dates: start: 20220530, end: 20220530
  16. PACLITAXEL [Suspect]
     Active Substance: PACLITAXEL
     Dosage: 135 MG, QW
     Route: 065
     Dates: start: 20220607, end: 20220607
  17. PACLITAXEL [Suspect]
     Active Substance: PACLITAXEL
     Dosage: 135 MG, QW
     Route: 065
     Dates: start: 20220615, end: 20220615
  18. PACLITAXEL [Suspect]
     Active Substance: PACLITAXEL
     Dosage: 135 MG, QW
     Route: 065
     Dates: start: 20220621, end: 20220621
  19. PACLITAXEL [Suspect]
     Active Substance: PACLITAXEL
     Dosage: 135 MG, QW
     Route: 065
     Dates: start: 20220628, end: 20220628
  20. PACLITAXEL [Suspect]
     Active Substance: PACLITAXEL
     Dosage: 135 MG, QW
     Route: 065
     Dates: start: 20220705, end: 20220705
  21. PACLITAXEL [Suspect]
     Active Substance: PACLITAXEL
     Dosage: 135 MG, QW
     Route: 065
     Dates: start: 20220720, end: 20220720
  22. PACLITAXEL [Suspect]
     Active Substance: PACLITAXEL
     Dosage: 135 MG, QW
     Route: 065
     Dates: start: 20220726, end: 20220726
  23. PACLITAXEL [Suspect]
     Active Substance: PACLITAXEL
     Dosage: 135 MG, QW
     Route: 065
     Dates: start: 20220803, end: 20220803
  24. PACLITAXEL [Suspect]
     Active Substance: PACLITAXEL
     Dosage: 135 MG, QW
     Route: 065
     Dates: start: 20220811, end: 20220811
  25. PACLITAXEL [Suspect]
     Active Substance: PACLITAXEL
     Dosage: 135 MG, QW
     Route: 065
     Dates: start: 20220817, end: 20220817
  26. PACLITAXEL [Suspect]
     Active Substance: PACLITAXEL
     Dosage: 135 MG, QW
     Route: 065
     Dates: start: 20220831, end: 20220831
  27. PEMBROLIZUMAB [Suspect]
     Active Substance: PEMBROLIZUMAB
     Indication: Breast cancer
     Dosage: 200 MG, Q3W (200 MILLIGRAM, Q3W)
     Route: 042
     Dates: start: 20220530
  28. PEMBROLIZUMAB [Suspect]
     Active Substance: PEMBROLIZUMAB
     Dosage: 200 MG, Q3W (200 MILLIGRAM, Q3W)
     Route: 042
     Dates: start: 20220621
  29. PEMBROLIZUMAB [Suspect]
     Active Substance: PEMBROLIZUMAB
     Dosage: 200 MG, Q3W (200 MILLIGRAM, Q3W)
     Route: 042
     Dates: start: 20220720
  30. PEMBROLIZUMAB [Suspect]
     Active Substance: PEMBROLIZUMAB
     Dosage: 200 MG, Q3W (200 MILLIGRAM, Q3W)
     Route: 042
     Dates: start: 20220811
  31. PEMBROLIZUMAB [Suspect]
     Active Substance: PEMBROLIZUMAB
     Dosage: 200 MG, Q3W (200 MILLIGRAM, Q3W)
     Route: 042
     Dates: start: 20220914
  32. PEMBROLIZUMAB [Suspect]
     Active Substance: PEMBROLIZUMAB
     Dosage: 200 MG, Q3W (200 MILLIGRAM, Q3W)
     Route: 042
     Dates: start: 20221005

REACTIONS (3)
  - Diabetic ketoacidosis [Recovered/Resolved with Sequelae]
  - Myocarditis [Recovered/Resolved]
  - Toxicity to various agents [Unknown]

NARRATIVE: CASE EVENT DATE: 20221007
